FAERS Safety Report 24414998 (Version 1)
Quarter: 2024Q4

REPORT INFORMATION
  Report Type: Spontaneous
  Country: BR (occurrence: BR)
  Receive Date: 20241009
  Receipt Date: 20241009
  Transmission Date: 20250115
  Serious: Yes (Other)
  Sender: TAKEDA
  Company Number: BR-TAKEDA-2024TUS098237

PATIENT
  Sex: Female

DRUGS (6)
  1. ROZEREM [Suspect]
     Active Substance: RAMELTEON
     Indication: Initial insomnia
     Dosage: 8 MILLIGRAM, QD
     Route: 065
     Dates: start: 20240908
  2. DESVE [Concomitant]
     Indication: Depression
     Dosage: 50 MILLIGRAM
  3. Plenance eze [Concomitant]
     Indication: Blood cholesterol abnormal
     Dosage: 20/10 MILLIGRAM, QD
  4. LEVOTHYROXINE [Concomitant]
     Active Substance: LEVOTHYROXINE
     Indication: Thyroid disorder
     Dosage: 50 MICROGRAM, QD
  5. NEBIVOLOL HYDROCHLORIDE [Concomitant]
     Active Substance: NEBIVOLOL HYDROCHLORIDE
     Indication: Hypertension
     Dosage: UNK
  6. VITAMIN D [Concomitant]
     Active Substance: VITAMIN D NOS
     Indication: Vitamin supplementation
     Dosage: UNK UNK, 1/WEEK

REACTIONS (18)
  - Loss of consciousness [Unknown]
  - Impaired quality of life [Unknown]
  - Nervousness [Unknown]
  - Hypersensitivity [Unknown]
  - Product counterfeit [Unknown]
  - Weight fluctuation [Unknown]
  - Feeling of despair [Unknown]
  - Tremor [Unknown]
  - Gastrointestinal disorder [Unknown]
  - Abdominal distension [Unknown]
  - Hunger [Unknown]
  - Hot flush [Unknown]
  - Aggression [Unknown]
  - Fear [Unknown]
  - Drug ineffective [Unknown]
  - Abnormal behaviour [Unknown]
  - Constipation [Unknown]
  - Dizziness [Unknown]
